FAERS Safety Report 22230463 (Version 7)
Quarter: 2023Q4

REPORT INFORMATION
  Report Type: Report from Study
  Country: CO (occurrence: CO)
  Receive Date: 20230419
  Receipt Date: 20231114
  Transmission Date: 20240110
  Serious: Yes (Hospitalization)
  Sender: FDA-Public Use
  Company Number: CO-TAKEDA-2023TUS038750

PATIENT
  Age: 3 Year
  Sex: Male
  Weight: 19 kg

DRUGS (6)
  1. IDURSULFASE [Suspect]
     Active Substance: IDURSULFASE
     Indication: Mucopolysaccharidosis II
     Dosage: 10 MILLIGRAM, 1/WEEK
     Route: 042
     Dates: start: 20230329
  2. IDURSULFASE [Suspect]
     Active Substance: IDURSULFASE
     Dosage: 10 GRAM, 1/WEEK
     Route: 042
     Dates: start: 20230408
  3. IDURSULFASE [Suspect]
     Active Substance: IDURSULFASE
     Dosage: 10 MILLIGRAM, 1/WEEK
     Route: 042
     Dates: start: 20230519
  4. IDURSULFASE [Suspect]
     Active Substance: IDURSULFASE
     Dosage: 10 MILLIGRAM, 1/WEEK
     Route: 042
     Dates: start: 20230609
  5. IDURSULFASE [Suspect]
     Active Substance: IDURSULFASE
     Dosage: 10 MILLIGRAM, 1/WEEK
     Route: 042
     Dates: start: 20230630
  6. IDURSULFASE [Suspect]
     Active Substance: IDURSULFASE
     Dosage: 10 MILLIGRAM, 1/WEEK
     Route: 042

REACTIONS (11)
  - Influenza [Recovering/Resolving]
  - Oxygen saturation decreased [Recovered/Resolved]
  - Nasal congestion [Recovered/Resolved]
  - Body temperature increased [Recovered/Resolved]
  - Chills [Recovered/Resolved]
  - Tachycardia [Recovered/Resolved]
  - Infusion site discharge [Unknown]
  - Device issue [Unknown]
  - Body height increased [Unknown]
  - Weight increased [Unknown]
  - Incorrect dose administered by device [Unknown]

NARRATIVE: CASE EVENT DATE: 20230409
